FAERS Safety Report 6506171-5 (Version None)
Quarter: 2009Q4

REPORT INFORMATION
  Report Type: 
  Country: None (occurrence: None)
  Receive Date: 20091218
  Receipt Date: 20091215
  Transmission Date: 20100525
  Serious: Yes (Hospitalization, Disabling)
  Sender: FDA-Public Use
  Company Number: US-ELI_LILLY_AND_COMPANY-US200912003497

PATIENT
  Sex: Female

DRUGS (12)
  1. HUMALOG [Suspect]
     Indication: DIABETES MELLITUS
     Dosage: 4 U, UNK
     Dates: start: 19970101
  2. HUMALOG [Suspect]
     Dosage: UNK, AS NEEDED
     Dates: start: 19970101
  3. HUMALOG [Suspect]
     Dosage: 10 U, UNK
     Dates: start: 20091215
  4. HUMALOG [Suspect]
     Dosage: 15 U, UNK
     Dates: start: 20091215
  5. HUMALOG [Suspect]
     Dosage: 4 U, UNK
     Dates: start: 19970101
  6. HUMALOG [Suspect]
     Dosage: UNK, AS NEEDED
     Dates: start: 19970101
  7. HUMALOG [Suspect]
     Dosage: 4 U, UNK
     Dates: start: 19970101
  8. HUMALOG [Suspect]
     Dosage: UNK, AS NEEDED
     Dates: start: 19970101
  9. LANTUS [Concomitant]
  10. BABY ASPIRIN [Concomitant]
     Dosage: UNK, DAILY (1/D)
  11. BRIMONIDINE [Concomitant]
     Dosage: UNK, 2/D
  12. EYE DROPS [Concomitant]

REACTIONS (7)
  - BLOOD GLUCOSE DECREASED [None]
  - BLOOD GLUCOSE INCREASED [None]
  - DRUG INEFFECTIVE [None]
  - LIMB CRUSHING INJURY [None]
  - POOR QUALITY DRUG ADMINISTERED [None]
  - ROAD TRAFFIC ACCIDENT [None]
  - VISUAL ACUITY REDUCED [None]
